FAERS Safety Report 20430167 (Version 1)
Quarter: 2022Q1

REPORT INFORMATION
  Report Type: Report from Study
  Country: FR (occurrence: FR)
  Receive Date: 20220204
  Receipt Date: 20220204
  Transmission Date: 20220424
  Serious: Yes (Hospitalization)
  Sender: FDA-Public Use
  Company Number: FR-SERVIER-S20004107

PATIENT

DRUGS (13)
  1. PEGASPARGASE [Suspect]
     Active Substance: PEGASPARGASE
     Indication: Acute lymphocytic leukaemia
     Dosage: 1575 IU
     Route: 042
     Dates: start: 20190228
  2. VINCRISTINE SULFATE [Suspect]
     Active Substance: VINCRISTINE SULFATE
     Indication: Acute lymphocytic leukaemia
     Dosage: 0.9 MG, ON D1, D8, D15
     Route: 042
     Dates: start: 20190225
  3. DAUNORUBICIN HYDROCHLORIDE [Suspect]
     Active Substance: DAUNORUBICIN HYDROCHLORIDE
     Indication: Acute lymphocytic leukaemia
     Dosage: 16.4 MG, ON D1, D8, D15
     Route: 042
     Dates: start: 20190225
  4. DEXAMETHASONE SODIUM PHOSPHATE [Suspect]
     Active Substance: DEXAMETHASONE SODIUM PHOSPHATE
     Indication: Acute lymphocytic leukaemia
     Dosage: 7.4 MG, D8 TO D28
     Route: 048
     Dates: start: 20190225
  5. METHOTREXATE [Suspect]
     Active Substance: METHOTREXATE
     Indication: Acute lymphocytic leukaemia
     Dosage: 12 MG,ON D4, D31
     Route: 037
     Dates: start: 20190228
  6. CYTARABINE [Suspect]
     Active Substance: CYTARABINE
     Indication: Acute lymphocytic leukaemia
     Dosage: 30 MG, ON D4, D31
     Route: 037
     Dates: start: 20190429
  7. CYTARABINE [Suspect]
     Active Substance: CYTARABINE
     Dosage: 49.5 MG,D31 TO D34, D38 TO D41
     Route: 042
     Dates: start: 20190331
  8. HYDROCORTISONE [Suspect]
     Active Substance: HYDROCORTISONE
     Indication: Acute lymphocytic leukaemia
     Dosage: 15 MG, ON D4, D31
     Route: 037
     Dates: start: 20190429
  9. CYCLOPHOSPHAMIDE [Suspect]
     Active Substance: CYCLOPHOSPHAMIDE
     Indication: Acute lymphocytic leukaemia
     Dosage: 660 MG, ON D29
     Route: 042
     Dates: start: 20190329
  10. THIOGUANINE [Suspect]
     Active Substance: THIOGUANINE
     Indication: Acute lymphocytic leukaemia
     Dosage: 40 MG, D29 TO D42
     Route: 048
     Dates: start: 20190329
  11. TN UNSPECIFIED [Concomitant]
     Indication: Vitamin D deficiency
     Dosage: 2 ML
     Route: 048
  12. TN UNSPECIFIED [Concomitant]
     Indication: Pneumocystis jirovecii pneumonia
     Dosage: 10 ML
     Route: 048
  13. TN UNSPECIFIED [Concomitant]
     Indication: Product used for unknown indication
     Dosage: 80 MG/KG
     Route: 048

REACTIONS (2)
  - Sepsis [Recovered/Resolved]
  - Hyperbilirubinaemia [Recovered/Resolved]

NARRATIVE: CASE EVENT DATE: 20190410
